FAERS Safety Report 9283622 (Version 1)
Quarter: 2013Q2

REPORT INFORMATION
  Report Type: Spontaneous
  Country: BR (occurrence: None)
  Receive Date: 20130508
  Receipt Date: 20130508
  Transmission Date: 20140414
  Serious: Yes (Other)
  Sender: FDA-Public Use
  Company Number: ENTC2013-0164

PATIENT
  Age: 88 Year
  Sex: Male
  Weight: 60 kg

DRUGS (2)
  1. STALEVO [Suspect]
  2. EXELON (RIVASTIGMINE) [Suspect]
     Route: 048

REACTIONS (1)
  - Pneumonia [None]
